FAERS Safety Report 8328452-5 (Version None)
Quarter: 2012Q2

REPORT INFORMATION
  Report Type: 
  Country: None (occurrence: None)
  Receive Date: 20120502
  Receipt Date: 20120502
  Transmission Date: 20120825
  Serious: Yes (Hospitalization)
  Sender: FDA-Public Use
  Company Number: None

PATIENT
  Sex: Female
  Weight: 65.317 kg

DRUGS (3)
  1. XARELTO [Suspect]
     Indication: THROMBOSIS PROPHYLAXIS
     Dosage: |DOSAGETEXT: 10MG||STRENGTH: 10MG||FREQ: QHS||ROUTE: ORAL|
     Route: 048
     Dates: start: 20111109, end: 20111110
  2. XARELTO [Suspect]
     Indication: HIP FRACTURE
     Dosage: |DOSAGETEXT: 10MG||STRENGTH: 10MG||FREQ: QHS||ROUTE: ORAL|
     Route: 048
     Dates: start: 20111109, end: 20111110
  3. XARELTO [Suspect]
     Indication: HIP SURGERY
     Dosage: |DOSAGETEXT: 10MG||STRENGTH: 10MG||FREQ: QHS||ROUTE: ORAL|
     Route: 048
     Dates: start: 20111109, end: 20111110

REACTIONS (1)
  - HEPATITIS [None]
